FAERS Safety Report 10365284 (Version 1)
Quarter: 2014Q3

REPORT INFORMATION
  Report Type: Spontaneous
  Country: US (occurrence: None)
  Receive Date: 20140804
  Receipt Date: 20140804
  Transmission Date: 20150326
  Serious: No
  Sender: FDA-Public Use
  Company Number: 14AE033

PATIENT
  Sex: Male

DRUGS (1)
  1. LOPERAMIDE HCL [Suspect]
     Active Substance: LOPERAMIDE HYDROCHLORIDE
     Indication: DIARRHOEA
     Dosage: 2 BY MOUTH/ONCE
     Route: 048
     Dates: start: 20140721

REACTIONS (2)
  - Decreased appetite [None]
  - Abdominal pain upper [None]

NARRATIVE: CASE EVENT DATE: 20140721
